FAERS Safety Report 5721973-0 (Version None)
Quarter: 2008Q2

REPORT INFORMATION
  Report Type: 
  Country: None (occurrence: None)
  Receive Date: 20080429
  Receipt Date: 20080407
  Transmission Date: 20081010
  Serious: Yes (Hospitalization)
  Sender: FDA-Public Use
  Company Number: NL-BOEHRINGER INGELHEIM GMBH, GERMANY-2008-NL-00227NL

PATIENT
  Sex: Female
  Weight: 51 kg

DRUGS (2)
  1. ATROVENT [Suspect]
     Indication: ASTHMA
     Route: 055
     Dates: start: 20080403, end: 20080403
  2. ALL KINDS OF MEDICATIONS [Concomitant]

REACTIONS (3)
  - DYSPNOEA [None]
  - HOSPITALISATION [None]
  - HYPERSENSITIVITY [None]
